FAERS Safety Report 14195825 (Version 7)
Quarter: 2018Q2

REPORT INFORMATION
  Report Type: Report from Study
  Country: AT (occurrence: AT)
  Receive Date: 20171116
  Receipt Date: 20180604
  Transmission Date: 20180711
  Serious: Yes (Death, Hospitalization, Other)
  Sender: FDA-Public Use
  Company Number: AT-INCYTE CORPORATION-2014IN004088

PATIENT

DRUGS (3)
  1. JAKAVI [Suspect]
     Active Substance: RUXOLITINIB
     Dosage: 5 MG, BID (1-0-1)
     Route: 048
     Dates: start: 20171017
  2. JAKAVI [Suspect]
     Active Substance: RUXOLITINIB
     Dosage: 10 MG, BID (1-0-1)
     Route: 048
     Dates: start: 20171006, end: 20171014
  3. JAKAVI [Suspect]
     Active Substance: RUXOLITINIB
     Indication: MYELOFIBROSIS
     Dosage: 15 MG, BID (1-0-1)
     Route: 048
     Dates: start: 20140125, end: 20171005

REACTIONS (27)
  - Acute kidney injury [Unknown]
  - Pain [Not Recovered/Not Resolved]
  - Anaemia [Not Recovered/Not Resolved]
  - Thrombocytopenia [Recovered/Resolved]
  - Vertigo positional [Recovered/Resolved]
  - Dyspnoea [Not Recovered/Not Resolved]
  - Leukopenia [Recovered/Resolved]
  - Immunodeficiency [Unknown]
  - Pleural effusion [Unknown]
  - Thrombocytopenia [Not Recovered/Not Resolved]
  - General physical health deterioration [Unknown]
  - Pneumonia fungal [Unknown]
  - Renal failure [Not Recovered/Not Resolved]
  - Pneumonia bacterial [Unknown]
  - Leukocytosis [Not Recovered/Not Resolved]
  - Leukocytosis [Recovered/Resolved]
  - Diarrhoea [Not Recovered/Not Resolved]
  - Hepatic haemorrhage [Unknown]
  - Toxic epidermal necrolysis [Unknown]
  - Nausea [Recovered/Resolved]
  - Pneumonia [Unknown]
  - Cardiopulmonary failure [Fatal]
  - Haemoptysis [Unknown]
  - C-reactive protein increased [Unknown]
  - Haematoma [Not Recovered/Not Resolved]
  - Infection [Unknown]
  - Pneumocystis jirovecii pneumonia [Unknown]

NARRATIVE: CASE EVENT DATE: 20141224
